FAERS Safety Report 8227460-2 (Version None)
Quarter: 2012Q1

REPORT INFORMATION
  Report Type: 
  Country: None (occurrence: None)
  Receive Date: 20120322
  Receipt Date: 20120314
  Transmission Date: 20120608
  Serious: Yes (Hospitalization)
  Sender: FDA-Public Use
  Company Number: US-BAYER-2011-070681

PATIENT
  Age: 20 Year
  Sex: Female
  Weight: 45.351 kg

DRUGS (11)
  1. CALCIUM CARBONATE [Concomitant]
     Indication: ABDOMINAL PAIN
  2. DROSPIRENONE AND ETHINYL ESTRADIOL [Suspect]
     Indication: CONTRACEPTION
     Dosage: UNK
     Dates: start: 20050101, end: 20090101
  3. MYLANTA [Concomitant]
     Indication: ABDOMINAL PAIN
  4. ATIVAN [Concomitant]
     Indication: DEPRESSION
     Dosage: 0.5MG
     Route: 048
     Dates: start: 20080101
  5. MYLANTA [Concomitant]
     Indication: ABDOMINAL PAIN UPPER
     Dosage: UNK
     Dates: start: 20090701
  6. CELEXA [Concomitant]
     Indication: DEPRESSION
     Dosage: 20 MG, UNK
     Route: 048
     Dates: start: 20080101
  7. DROSPIRENONE AND ETHINYL ESTRADIOL [Suspect]
     Indication: ACNE
  8. YASMIN [Suspect]
     Dosage: UNK
     Dates: start: 20050101, end: 20090101
  9. ALBUTEROL [Concomitant]
     Indication: ASTHMA
     Dosage: 2-PUFF
     Route: 045
     Dates: start: 20080101
  10. CALCIUM CARBONATE [Concomitant]
     Indication: ABDOMINAL PAIN UPPER
     Dosage: UNK
     Dates: start: 20090701
  11. YAZ [Suspect]
     Dosage: UNK
     Dates: start: 20050101, end: 20090101

REACTIONS (4)
  - CHOLECYSTITIS ACUTE [None]
  - PSORIASIS [None]
  - CHOLELITHIASIS [None]
  - PAIN [None]
